FAERS Safety Report 8852906 (Version 1)
Quarter: 2012Q4

REPORT INFORMATION
  Report Type: 
  Country: US (occurrence: US)
  Receive Date: 20121022
  Receipt Date: 20121022
  Transmission Date: 20130627
  Serious: No
  Sender: FDA-Public Use
  Company Number: US-B.I. PHARMACEUTICALS,INC./RIDGEFIELD-2012-BP-25549BP

PATIENT
  Sex: Male

DRUGS (2)
  1. FLOMAX CAPSULES [Suspect]
     Route: 048
  2. FLURAZEPAM [Concomitant]
     Indication: SLEEP DISORDER
     Route: 048

REACTIONS (1)
  - Adverse event [Unknown]
